FAERS Safety Report 19122849 (Version 3)
Quarter: 2021Q4

REPORT INFORMATION
  Report Type: Report from Study
  Country: IT (occurrence: IT)
  Receive Date: 20210412
  Receipt Date: 20211220
  Transmission Date: 20220303
  Serious: Yes (Other)
  Sender: FDA-Public Use
  Company Number: IT-SHIONOGI, INC-2021000119

PATIENT

DRUGS (39)
  1. FETROJA [Suspect]
     Active Substance: CEFIDEROCOL SULFATE TOSYLATE
     Indication: Skin ulcer
     Dosage: 2 G, TID
     Route: 042
     Dates: start: 20210324, end: 20210327
  2. FETROJA [Suspect]
     Active Substance: CEFIDEROCOL SULFATE TOSYLATE
     Indication: Bacterial infection
  3. FETROJA [Suspect]
     Active Substance: CEFIDEROCOL SULFATE TOSYLATE
     Indication: Pseudomonas infection
  4. FETROJA [Suspect]
     Active Substance: CEFIDEROCOL SULFATE TOSYLATE
     Indication: Multiple-drug resistance
  5. FETROJA [Suspect]
     Active Substance: CEFIDEROCOL SULFATE TOSYLATE
     Indication: Ecthyma
  6. FETROJA [Suspect]
     Active Substance: CEFIDEROCOL SULFATE TOSYLATE
     Indication: Pathogen resistance
  7. AMIKACIN [Suspect]
     Active Substance: AMIKACIN
     Indication: Ecthyma
     Dosage: 1 G/DIE
     Route: 042
     Dates: start: 20210323, end: 20210327
  8. AMIKACIN [Suspect]
     Active Substance: AMIKACIN
     Indication: Pathogen resistance
  9. AMIKACIN [Suspect]
     Active Substance: AMIKACIN
     Indication: Pseudomonas infection
  10. DARATUMUMAB [Concomitant]
     Active Substance: DARATUMUMAB
     Indication: Plasma cell myeloma
     Dosage: ONCE A MONTH
     Route: 042
     Dates: start: 20190311
  11. LENALIDOMIDE [Concomitant]
     Active Substance: LENALIDOMIDE
     Indication: Plasma cell myeloma
     Dosage: ONE TABLET IN THE EVENTING FOR 21 DAYS
     Route: 065
     Dates: start: 20200824
  12. DEXAMETHASONE [Concomitant]
     Active Substance: DEXAMETHASONE
     Indication: Plasma cell myeloma
     Dosage: ONE BOTTLE TO DRINK AFTER BREAKFAST ONLY ON 11MAR2021
     Route: 048
     Dates: start: 20210311, end: 20210311
  13. ISOSORBIDE MONONITRATE [Concomitant]
     Active Substance: ISOSORBIDE MONONITRATE
     Indication: Product used for unknown indication
     Dosage: 1/2 TABLET IN THE MORNING
     Route: 065
     Dates: start: 201902
  14. METFORMIN HYDROCHLORIDE [Concomitant]
     Active Substance: METFORMIN HYDROCHLORIDE
     Indication: Product used for unknown indication
     Dosage: 1/2 TABLET IN THE MORNING AND IN THE EVENING
     Route: 065
     Dates: start: 201902
  15. ATENOLOL [Concomitant]
     Active Substance: ATENOLOL
     Indication: Product used for unknown indication
     Dosage: 1/4 TABLET IN THE MORNING AND 1/2 TABLET IN THE EVENING
     Route: 065
     Dates: start: 201902
  16. LANSOPRAZOLE [Concomitant]
     Active Substance: LANSOPRAZOLE
     Indication: Product used for unknown indication
     Dosage: 30 MG, ONE TABLET IN THE MORNING BEFORE BREAKFAST
     Route: 065
     Dates: start: 201902
  17. ALLOPURINOL [Concomitant]
     Active Substance: ALLOPURINOL
     Indication: Product used for unknown indication
     Dosage: 300 MG, ONE TABLET ONCE A DAY
     Route: 065
     Dates: start: 201902
  18. VALACYCLOVIR HYDROCHLORIDE [Concomitant]
     Active Substance: VALACYCLOVIR HYDROCHLORIDE
     Indication: Product used for unknown indication
     Dosage: 1 GR, ONE TABLET ONCE A DAY
     Route: 065
     Dates: start: 201902
  19. BACTRIM [Concomitant]
     Active Substance: SULFAMETHOXAZOLE\TRIMETHOPRIM
     Indication: Product used for unknown indication
     Dosage: ONE TABLET IN THE MORNING AND ONE TABLET IN THE EVENING EVERY TUESDAY AND FRIDAY
     Route: 065
     Dates: start: 20210311
  20. IRBESARTAN [Concomitant]
     Active Substance: IRBESARTAN
     Indication: Product used for unknown indication
     Dosage: ONE TABLET ONCE A DAY (TO TAKE ONLY IF BLOOD PRESSURE }130/80 MH) (SUSPENDED DURING THE HOT SEASON)
     Route: 065
  21. ASPIRIN DL-LYSINE [Concomitant]
     Active Substance: ASPIRIN DL-LYSINE
     Indication: Product used for unknown indication
     Dosage: 75 MG, ONE TABLET AFTER LUNCH
     Route: 065
     Dates: start: 201902
  22. EDOXABAN TOSYLATE [Concomitant]
     Active Substance: EDOXABAN TOSYLATE
     Indication: Product used for unknown indication
     Dosage: 60 MG, ONE TABLET
     Route: 065
     Dates: start: 201902
  23. LEVOSULPIRIDE [Concomitant]
     Active Substance: LEVOSULPIRIDE
     Indication: Nausea
     Dosage: 20 DROPS IF NAUSEA
     Route: 065
  24. OLIO VASELINA [Concomitant]
     Indication: Product used for unknown indication
     Dosage: ONE TABLESPOON BEFORE MEALS (TO BE INCREASED TO TID THE FIRST WEEK OF THERAPY)
     Route: 065
  25. CLISTERE EVACUATIVO [Concomitant]
     Indication: Product used for unknown indication
     Dosage: EVACUATIVE ENEMA IF HE DOESN^T EVACUATE AFTER 3 DAYS
     Route: 065
  26. SELG ESSE 250 [Concomitant]
     Indication: Product used for unknown indication
     Dosage: ONE SACHET TO DISSOLVE IN 500 ML OF WATER, TO DRINK IN 30 MIN IF THERE IS CONSTIPATION
     Route: 048
  27. CALCIO CARBONATO 1000 [Concomitant]
     Indication: Product used for unknown indication
     Dosage: ONE TABLET ONCE A DAY (SUSPENDED)
     Route: 065
  28. LASIX [Concomitant]
     Active Substance: FUROSEMIDE
     Indication: Product used for unknown indication
     Dosage: ONE TABLET AT THE MORNING AND ONE TABLET AT LUNCH
     Route: 065
  29. CANRENONE [Concomitant]
     Active Substance: CANRENONE
     Indication: Product used for unknown indication
     Dosage: ONE CAPSULE IN THE AFTERNOON
     Route: 065
  30. EPOETIN ZETA [Concomitant]
     Active Substance: ERYTHROPOIETIN
     Indication: Product used for unknown indication
     Dosage: 30.000, ONE BOTTLE PER WEEK
     Route: 065
  31. FOLIC ACID [Concomitant]
     Active Substance: FOLIC ACID
     Indication: Product used for unknown indication
     Dosage: ONE TABLET PER DAY
     Route: 065
  32. VITAMINA B12 [Concomitant]
     Indication: Product used for unknown indication
     Dosage: ONE BOTTLE TO DRINK ON MONDAY, WEDNESDAY AND FRIDAY
     Route: 048
  33. GABAPENTIN [Concomitant]
     Active Substance: GABAPENTIN
     Indication: Product used for unknown indication
     Dosage: ONE TABLET IN THE MORNING AND ONE TABLET IN THE EVENING
     Route: 065
  34. FOSFOMYCIN [Concomitant]
     Active Substance: FOSFOMYCIN
     Indication: Ecthyma
     Route: 065
  35. FOSFOMYCIN [Concomitant]
     Active Substance: FOSFOMYCIN
     Indication: Pathogen resistance
  36. FOSFOMYCIN [Concomitant]
     Active Substance: FOSFOMYCIN
     Indication: Pseudomonas infection
  37. MEROPENEM [Concomitant]
     Active Substance: MEROPENEM
     Indication: Ecthyma
     Dosage: UNK
     Route: 065
  38. MEROPENEM [Concomitant]
     Active Substance: MEROPENEM
     Indication: Pathogen resistance
  39. MEROPENEM [Concomitant]
     Active Substance: MEROPENEM
     Indication: Pseudomonas infection

REACTIONS (8)
  - Encephalopathy [Recovered/Resolved]
  - Altered state of consciousness [Recovered/Resolved]
  - Disorientation [Recovered/Resolved]
  - Somnolence [Recovered/Resolved]
  - Drug effect less than expected [Unknown]
  - Infection [Unknown]
  - Blood creatinine increased [Recovered/Resolved]
  - Overdose [Unknown]

NARRATIVE: CASE EVENT DATE: 20210325
